FAERS Safety Report 9790917 (Version 3)
Quarter: 2014Q1

REPORT INFORMATION
  Report Type: Spontaneous
  Country: FR (occurrence: FR)
  Receive Date: 20131231
  Receipt Date: 20140124
  Transmission Date: 20141002
  Serious: Yes (Hospitalization)
  Sender: FDA-Public Use
  Company Number: FR-FRI-1000052589

PATIENT
  Age: 52 Year
  Sex: Female

DRUGS (16)
  1. MILNACIPRAN [Suspect]
     Indication: DEPRESSION
     Dosage: 1 DF IN THE MORNING
  2. PREVISCAN [Suspect]
     Indication: PULMONARY EMBOLISM
     Route: 048
  3. PREVISCAN [Suspect]
     Indication: ANTIPHOSPHOLIPID ANTIBODIES
  4. TOPALGIC [Suspect]
     Indication: PAIN
     Route: 048
  5. COLCHICINE [Suspect]
     Indication: BEHCET^S SYNDROME
     Route: 048
  6. OMEPRAZOLE [Concomitant]
  7. DICETEL [Concomitant]
     Indication: PAIN
  8. DIFFU K [Concomitant]
     Indication: HYPOKALAEMIA
  9. IPERTEN [Concomitant]
     Indication: HYPERTENSION
  10. CACIT [Concomitant]
     Indication: CALCIUM DEFICIENCY
  11. UVEDOSE [Concomitant]
     Indication: VITAMIN D DEFICIENCY
  12. KERLONE [Concomitant]
     Indication: HYPERTENSION
  13. CLARADOL [Concomitant]
     Indication: PAIN
  14. ABUFENE [Concomitant]
     Indication: HOT FLUSH
  15. LEXOMIL [Concomitant]
     Indication: DEPRESSION
  16. ZOLPIDEM [Concomitant]

REACTIONS (3)
  - International normalised ratio increased [Recovered/Resolved]
  - Epistaxis [Recovered/Resolved]
  - Haematoma [Recovered/Resolved]
